FAERS Safety Report 25708086 (Version 3)
Quarter: 2025Q4

REPORT INFORMATION
  Report Type: Spontaneous
  Country: JP (occurrence: JP)
  Receive Date: 20250820
  Receipt Date: 20251211
  Transmission Date: 20260118
  Serious: Yes (Death, Hospitalization)
  Sender: ELI LILLY AND COMPANY
  Company Number: JP-ELI_LILLY_AND_COMPANY-JP202508014281

PATIENT
  Age: 75 Year
  Sex: Female

DRUGS (1)
  1. JAYPIRCA [Suspect]
     Active Substance: PIRTOBRUTINIB
     Indication: Mantle cell lymphoma recurrent
     Dosage: 50 MG, DAILY
     Route: 048
     Dates: start: 20250623, end: 20250808

REACTIONS (1)
  - Illness [Fatal]

NARRATIVE: CASE EVENT DATE: 20250807
